FAERS Safety Report 13853109 (Version 9)
Quarter: 2019Q3

REPORT INFORMATION
  Report Type: Spontaneous
  Country: CA (occurrence: CA)
  Receive Date: 20170810
  Receipt Date: 20190930
  Transmission Date: 20191004
  Serious: Yes (Other)
  Sender: FDA-Public Use
  Company Number: CA-AUROBINDO-AUR-APL-2017-38712

PATIENT
  Age: 84 Year
  Sex: Female
  Weight: 90.72 kg

DRUGS (72)
  1. BETAHISTINE [Suspect]
     Active Substance: BETAHISTINE
     Dosage: 8 MILLIGRAM, ONCE A DAY
     Route: 065
  2. REACTINE [CETIRIZINE HYDROCHLORIDE] [Suspect]
     Active Substance: CETIRIZINE HYDROCHLORIDE
     Dosage: UNK
     Route: 065
  3. ACTONEL [Suspect]
     Active Substance: RISEDRONATE SODIUM
     Dosage: 150 MILLIGRAM, 1 EVERY MONTH
     Route: 065
  4. APO-LEVOCARB CR [Suspect]
     Active Substance: CARBIDOPA\LEVODOPA
     Indication: PARKINSON^S DISEASE
     Dosage: UNK, THREE TIMES A DAY
     Route: 065
  5. ERGOCALCIFEROL. [Suspect]
     Active Substance: ERGOCALCIFEROL
     Indication: OSTEOPOROSIS
     Dosage: 1000.0 INTERNATIONAL UNIT, ONCE A DAY
     Route: 065
  6. RESTORIL [Concomitant]
     Active Substance: TEMAZEPAM
     Indication: PRODUCT USED FOR UNKNOWN INDICATION
     Dosage: UNK
     Route: 065
  7. CITALOPRAM [Suspect]
     Active Substance: CITALOPRAM HYDROBROMIDE
     Indication: DEPRESSION
     Dosage: UNK, ONCE A DAY
     Route: 065
  8. CANDESARTAN TABLETS [Suspect]
     Active Substance: CANDESARTAN
     Indication: HYPERTENSION
     Dosage: 4 MILLIGRAM, ONCE A DAY
     Route: 048
  9. CANDESARTAN TABLETS [Suspect]
     Active Substance: CANDESARTAN
     Dosage: 4 DOSAGE FORM, ONCE A DAY
     Route: 065
  10. BETAHISTINE [Suspect]
     Active Substance: BETAHISTINE
     Indication: VERTIGO
     Dosage: 8 MILLIGRAM, 2 /WEEKS
     Route: 065
  11. BETAHISTINE [Suspect]
     Active Substance: BETAHISTINE
     Dosage: 8 MG, BID
     Route: 065
  12. BETAHISTINE [Suspect]
     Active Substance: BETAHISTINE
     Dosage: 8 MG, UNK
     Route: 065
  13. TIMOLOL SANDOZ [Suspect]
     Active Substance: TIMOLOL
     Indication: GLAUCOMA
     Dosage: 0.5 PERCENT
     Route: 047
  14. ACTONEL [Suspect]
     Active Substance: RISEDRONATE SODIUM
     Dosage: 150 MILLIGRAM
     Route: 065
  15. APO-MIRTAZAPINE [Suspect]
     Active Substance: MIRTAZAPINE
     Indication: DEPRESSED MOOD
     Dosage: 7.5 MILLIGRAM, ONCE A DAY
     Route: 065
  16. APO RISEDRONATE [Suspect]
     Active Substance: RISEDRONATE SODIUM
     Indication: OSTEOPOROSIS
     Dosage: 150 MILLIGRAM, ONCE A DAY
     Route: 065
  17. PERCOCET [Concomitant]
     Active Substance: ACETAMINOPHEN\OXYCODONE HYDROCHLORIDE
     Indication: PRODUCT USED FOR UNKNOWN INDICATION
     Dosage: UNK
     Route: 065
  18. BETAHISTINE [Suspect]
     Active Substance: BETAHISTINE
     Dosage: 16 MILLIGRAM, ONCE A DAY
     Route: 065
  19. CITALOPRAM [Suspect]
     Active Substance: CITALOPRAM HYDROBROMIDE
     Indication: DEPRESSED MOOD
     Dosage: 5 MG, ONCE A DAY
     Route: 065
  20. CANDESARTAN TABLETS [Suspect]
     Active Substance: CANDESARTAN
     Dosage: 4 MILLIGRAM, ONCE A DAY
     Route: 065
  21. MIRTAZAPINE ORODISPERSABLE TABLET [Suspect]
     Active Substance: MIRTAZAPINE
     Indication: DEPRESSION
  22. BISOPROLOL [Suspect]
     Active Substance: BISOPROLOL
     Indication: PRODUCT USED FOR UNKNOWN INDICATION
     Dosage: 1.25 MILLIGRAM, ONCE A DAY
     Route: 065
  23. TRAZODONE [Suspect]
     Active Substance: TRAZODONE HYDROCHLORIDE
     Indication: INSOMNIA
     Dosage: 50 MG, ONCE A DAY
     Route: 048
  24. VITAMIN D [Suspect]
     Active Substance: VITAMIN D NOS
     Indication: OSTEOPOROSIS
     Dosage: 1000 IU, ONCE A DAY
     Route: 065
  25. ACTONEL [Suspect]
     Active Substance: RISEDRONATE SODIUM
     Dosage: UNK
     Route: 065
  26. ACTONEL [Suspect]
     Active Substance: RISEDRONATE SODIUM
     Dosage: UNK
     Route: 065
  27. APO-TRAZODONE [Suspect]
     Active Substance: TRAZODONE HYDROCHLORIDE
     Dosage: 50 MILLIGRAM, ONCE A DAY
     Route: 065
  28. CANDESARTAN HCT [Suspect]
     Active Substance: CANDESARTAN CILEXETIL\HYDROCHLOROTHIAZIDE
     Dosage: 4 MILLIGRAM, ONCE A DAY
     Route: 065
  29. BISOPROLOL [Suspect]
     Active Substance: BISOPROLOL
     Dosage: UNK, ONCE A DAY
     Route: 065
  30. METOCLOPRAMIDE HYDROCHLORIDE. [Suspect]
     Active Substance: METOCLOPRAMIDE HYDROCHLORIDE
     Indication: DIVERTICULITIS
     Dosage: 10 MILLIGRAM, 3 TIMES A DAY
     Route: 065
  31. TRAZODONE [Suspect]
     Active Substance: TRAZODONE HYDROCHLORIDE
     Dosage: 25 MG, UNK
     Route: 048
  32. VITAMIN D [Suspect]
     Active Substance: VITAMIN D NOS
     Dosage: UNK, ONCE A DAY
     Route: 065
  33. LEVOTHYROXINE SODIUM. [Suspect]
     Active Substance: LEVOTHYROXINE SODIUM
     Indication: HYPOTHYROIDISM
     Dosage: 0.05 MILLIGRAM, ONCE A DAY
     Route: 065
  34. CARBIDOPA;LEVODOPA [Suspect]
     Active Substance: CARBIDOPA\LEVODOPA
     Indication: PARKINSON^S DISEASE
     Dosage: UNK, 3 TIMES A DAY
     Route: 065
  35. ACTONEL [Suspect]
     Active Substance: RISEDRONATE SODIUM
     Dosage: 5 MILLIGRAM
     Route: 065
  36. CANDESARTAN HCT [Suspect]
     Active Substance: CANDESARTAN CILEXETIL\HYDROCHLOROTHIAZIDE
     Indication: HYPERTENSION
     Dosage: UNK UNK, ONCE A DAY
     Route: 065
  37. BETAHISTINE [Suspect]
     Active Substance: BETAHISTINE
     Dosage: 8 MG, UNK
     Route: 065
  38. TRAZODONE [Suspect]
     Active Substance: TRAZODONE HYDROCHLORIDE
     Dosage: 50 MG, UNK
     Route: 048
  39. ACTONEL [Suspect]
     Active Substance: RISEDRONATE SODIUM
     Indication: OSTEOPOROSIS
     Dosage: 150 MILLIGRAM, ONCE A DAY
     Route: 065
  40. APO-LEVOCARB CR [Suspect]
     Active Substance: CARBIDOPA\LEVODOPA
     Dosage: 2 DOSAGE FORM, 3 TIMES A DAY
     Route: 065
  41. APO-CETIRIZINE [Suspect]
     Active Substance: CETIRIZINE HYDROCHLORIDE
     Indication: EYE PRURITUS
     Dosage: 20 MILLIGRAM, ONCE A DAY
     Route: 065
  42. APO-LEVOCARB [Suspect]
     Active Substance: CARBIDOPA\LEVODOPA
     Indication: PARKINSON^S DISEASE
     Dosage: 2 DOSAGE FORM, 3 TIMES A DAY
     Route: 065
  43. BISOPROLOL FUMARATE. [Suspect]
     Active Substance: BISOPROLOL FUMARATE
     Indication: PRODUCT USED FOR UNKNOWN INDICATION
     Dosage: 1.25 MILLIGRAM, ONCE A DAY
     Route: 065
  44. PAROXETINE TABLET [Suspect]
     Active Substance: PAROXETINE
     Indication: DEPRESSION
     Dosage: 20 MILLIGRAM, ONCE A DAY
     Route: 048
  45. BETAHISTINE [Suspect]
     Active Substance: BETAHISTINE
     Indication: VERTIGO
     Dosage: 8 MILLIGRAM, ONCE A DAY
     Route: 065
  46. BETAHISTINE [Suspect]
     Active Substance: BETAHISTINE
     Dosage: 24 MILLIGRAM, ONCE A DAY
     Route: 065
  47. CITALOPRAM [Suspect]
     Active Substance: CITALOPRAM HYDROBROMIDE
     Indication: DEPRESSED MOOD
     Dosage: 5 MILLIGRAM, ONCE A DAY
     Route: 065
  48. MIRTAZAPINE ORODISPERSABLE TABLET [Suspect]
     Active Substance: MIRTAZAPINE
     Indication: DEPRESSED MOOD
     Dosage: 7.5 MG, ONCE A DAY
     Route: 065
  49. PANTOPRAZOLE [Suspect]
     Active Substance: PANTOPRAZOLE
     Indication: NAUSEA
     Dosage: 40 MILLIGRAM, ONCE A DAY
     Route: 048
  50. REACTINE [CETIRIZINE HYDROCHLORIDE] [Suspect]
     Active Substance: CETIRIZINE HYDROCHLORIDE
     Indication: EYE PRURITUS
     Dosage: 20 MILLIGRAM, ONCE A DAY
     Route: 065
  51. APO-BISOPROLOL [Suspect]
     Active Substance: BISOPROLOL FUMARATE
     Indication: PRODUCT USED FOR UNKNOWN INDICATION
     Dosage: 1 DOSAGE FORM, ONCE A DAY
     Route: 065
  52. APO-TRAZODONE [Suspect]
     Active Substance: TRAZODONE HYDROCHLORIDE
     Indication: INSOMNIA
     Dosage: 25 MILLIGRAM
     Route: 065
  53. APO TIMOP [Suspect]
     Active Substance: TIMOLOL MALEATE
     Indication: GLAUCOMA
     Dosage: 1 DOSAGE FORM, TWO TIMES A DAY
     Route: 047
  54. SINEMET [Suspect]
     Active Substance: CARBIDOPA\LEVODOPA
     Indication: PARKINSON^S DISEASE
     Dosage: UNK
     Route: 065
  55. CANDESARTAN. [Suspect]
     Active Substance: CANDESARTAN
     Indication: HYPERTENSION
     Dosage: 4 MILLIGRAM, ONCE A DAY
     Route: 065
  56. ROSUVASTATIN TABLET [Suspect]
     Active Substance: ROSUVASTATIN
     Indication: HAEMORRHAGIC STROKE
     Dosage: 20 MILLIGRAM, ONCE A DAY
     Route: 065
  57. ROSUVASTATIN TABLET [Suspect]
     Active Substance: ROSUVASTATIN
     Dosage: UNK
     Route: 065
  58. BISOPROLOL [Suspect]
     Active Substance: BISOPROLOL
     Dosage: UNK
     Route: 065
  59. BETAHISTINE [Suspect]
     Active Substance: BETAHISTINE
     Dosage: 24 MILLIGRAM, ONCE A DAY (8MG 3 TIMES A DAY)
     Route: 065
  60. BETAHISTINE [Suspect]
     Active Substance: BETAHISTINE
     Dosage: UNK
     Route: 065
  61. DIMENHYDRINATE. [Suspect]
     Active Substance: DIMENHYDRINATE
     Indication: NAUSEA
     Dosage: 50 MILLIGRAM
     Route: 065
  62. VITAMIN D [Suspect]
     Active Substance: VITAMIN D NOS
     Dosage: 1000 DOSAGE FORM, ONCE A DAY
     Route: 065
  63. APO-CITALOPRAM [Suspect]
     Active Substance: CITALOPRAM HYDROBROMIDE
     Indication: DEPRESSED MOOD
     Dosage: UNK, ONCE A DAY
     Route: 065
  64. APO CANDESARTAN [Suspect]
     Active Substance: CANDESARTAN CILEXETIL
     Indication: HYPERTENSION
     Dosage: 4 MILLIGRAM, ONCE A DAY
     Route: 065
  65. APO RISEDRONATE [Suspect]
     Active Substance: RISEDRONATE SODIUM
     Dosage: 150 MILLIGRAM
     Route: 065
  66. BISOPROLOL FUMARATE. [Suspect]
     Active Substance: BISOPROLOL FUMARATE
     Indication: PRODUCT USED FOR UNKNOWN INDICATION
     Dosage: UNK, ONCE A DAY
     Route: 065
  67. PAROXETINE TABLET [Suspect]
     Active Substance: PAROXETINE
     Dosage: 50 MILLIGRAM
     Route: 048
  68. METOCLOPRAMIDE HYDROCHLORIDE. [Suspect]
     Active Substance: METOCLOPRAMIDE HYDROCHLORIDE
     Dosage: 30 MILLIGRAM, ONCE A DAY (10 MG, THREE TIMES A DAY)
     Route: 065
  69. TIMOLOL SANDOZ [Suspect]
     Active Substance: TIMOLOL
     Dosage: 1 DOSAGE FORM, TWO TIMES A DAY
     Route: 047
  70. APO-METOCLOP [Suspect]
     Active Substance: METOCLOPRAMIDE HYDROCHLORIDE
     Indication: DIVERTICULITIS
     Dosage: 10 MILLIGRAM, 3 TIMES A DAY
     Route: 065
  71. APO ROSUVASTATIN [Suspect]
     Active Substance: ROSUVASTATIN CALCIUM
     Indication: HAEMORRHAGIC STROKE
     Dosage: 20 MILLIGRAM, ONCE A DAY
     Route: 065
  72. REMERON [Suspect]
     Active Substance: MIRTAZAPINE
     Indication: DEPRESSED MOOD
     Dosage: 7.5 MILLIGRAM, ONCE A DAY
     Route: 065

REACTIONS (28)
  - Dizziness [Recovered/Resolved]
  - Parkinson^s disease [Recovered/Resolved]
  - Hypotension [Recovered/Resolved]
  - Depressed mood [Recovered/Resolved]
  - Abdominal distension [Recovered/Resolved]
  - Vitamin B12 decreased [Recovered/Resolved]
  - Vertigo [Recovered/Resolved]
  - Decreased appetite [Recovered/Resolved]
  - Eye pruritus [Recovered/Resolved]
  - Nausea [Recovered/Resolved]
  - Product use in unapproved indication [Not Recovered/Not Resolved]
  - Incorrect dose administered [Unknown]
  - Off label use [Not Recovered/Not Resolved]
  - Depression [Unknown]
  - Product substitution issue [Unknown]
  - Hypersensitivity [Recovered/Resolved]
  - Loss of personal independence in daily activities [Recovered/Resolved]
  - Lacrimation increased [Recovered/Resolved]
  - Balance disorder [Recovered/Resolved]
  - Fall [Recovered/Resolved]
  - Dry mouth [Recovered/Resolved]
  - Fatigue [Recovered/Resolved]
  - Vomiting [Recovered/Resolved]
  - Anxiety [Unknown]
  - Constipation [Recovered/Resolved]
  - Condition aggravated [Recovered/Resolved]
  - Drug ineffective [Recovered/Resolved]
  - Underdose [Not Recovered/Not Resolved]
